FAERS Safety Report 4756350-2 (Version None)
Quarter: 2005Q3

REPORT INFORMATION
  Report Type: 
  Country: None (occurrence: None)
  Receive Date: 20050830
  Receipt Date: 20050607
  Transmission Date: 20060218
  Serious: No
  Sender: FDA-Public Use
  Company Number: US-GLAXOSMITHKLINE-A0561599A

PATIENT
  Age: 36 Year
  Sex: Female

DRUGS (2)
  1. WELLBUTRIN [Suspect]
     Indication: ANXIETY
     Dosage: 150MG IN THE MORNING
     Route: 048
     Dates: start: 20050603
  2. TRAZODONE [Concomitant]

REACTIONS (2)
  - INSOMNIA [None]
  - MIDDLE INSOMNIA [None]
